FAERS Safety Report 21662409 (Version 1)
Quarter: 2022Q4

REPORT INFORMATION
  Report Type: Spontaneous
  Country: JP (occurrence: JP)
  Receive Date: 20221130
  Receipt Date: 20221130
  Transmission Date: 20230113
  Serious: Yes (Other)
  Sender: FDA-Public Use
  Company Number: JP-GILEAD-2022-0604006

PATIENT
  Age: 91 Year
  Sex: Male

DRUGS (1)
  1. VEKLURY [Suspect]
     Active Substance: REMDESIVIR
     Indication: COVID-19
     Dosage: UNK
     Route: 065
     Dates: start: 20221029, end: 20221103

REACTIONS (6)
  - Breath sounds abnormal [Unknown]
  - Pneumonia [Not Recovered/Not Resolved]
  - Aspiration [Unknown]
  - C-reactive protein increased [Recovering/Resolving]
  - Decreased appetite [Recovering/Resolving]
  - Fluid retention [Unknown]

NARRATIVE: CASE EVENT DATE: 20221103
